FAERS Safety Report 8978788 (Version 3)
Quarter: 2013Q1

REPORT INFORMATION
  Report Type: Spontaneous
  Country: US (occurrence: US)
  Receive Date: 20121220
  Receipt Date: 20130125
  Transmission Date: 20140127
  Serious: No
  Sender: FDA-Public Use
  Company Number: US-PFIZER INC-2012322267

PATIENT
  Age: 58 Year
  Sex: Female
  Weight: 54.42 kg

DRUGS (6)
  1. LYRICA [Suspect]
     Indication: TRIGEMINAL NEURALGIA
     Dosage: UNK, 2X/DAY
     Dates: start: 201210
  2. LYRICA [Suspect]
     Indication: FIBROMYALGIA
  3. LYRICA [Suspect]
     Indication: PAIN
  4. LISINOPRIL [Concomitant]
     Indication: BLOOD PRESSURE ABNORMAL
     Dosage: UNK, DAILY
  5. PANTOPRAZOLE [Concomitant]
     Indication: GASTRIC DISORDER
     Dosage: UNK, DAILY
  6. TEGRETOL [Concomitant]
     Indication: TRIGEMINAL NEURALGIA
     Dosage: UNK, AS NEEDED
     Dates: start: 1995

REACTIONS (1)
  - Drug ineffective [Unknown]
